FAERS Safety Report 8737867 (Version 10)
Quarter: 2019Q3

REPORT INFORMATION
  Report Type: Spontaneous
  Country: US (occurrence: US)
  Receive Date: 20120823
  Receipt Date: 20190906
  Transmission Date: 20191005
  Serious: Yes (Disabling, Other)
  Sender: FDA-Public Use
  Company Number: US-009507513-1206USA02817

PATIENT
  Sex: Male
  Weight: 78.01 kg

DRUGS (7)
  1. PROSCAR [Suspect]
     Active Substance: FINASTERIDE
     Indication: BENIGN PROSTATIC HYPERPLASIA
     Dosage: 5 MILLIGRAM (1 TABLET) DAILY
     Route: 048
     Dates: start: 20111110, end: 201406
  2. DOXAZOSIN MESYLATE. [Concomitant]
     Active Substance: DOXAZOSIN MESYLATE
     Dosage: 8 MILLIGRAM (2 TABLETS), EVERY NIGHT AT BEDTIME
     Route: 048
     Dates: start: 20111201
  3. SERTRALINE HYDROCHLORIDE. [Concomitant]
     Active Substance: SERTRALINE HYDROCHLORIDE
     Dosage: 75 MILLIGRAM (3 TABLETS) EVERY MORNING
     Route: 048
     Dates: start: 20111014
  4. SERTRALINE HYDROCHLORIDE. [Concomitant]
     Active Substance: SERTRALINE HYDROCHLORIDE
     Dosage: 75 MILLIGRAM (3 TABLETS) EVERY MORNING
     Route: 048
     Dates: start: 20120619
  5. LEVALBUTEROL TARTRATE. [Concomitant]
     Active Substance: LEVALBUTEROL TARTRATE
     Indication: ASTHMA
     Dosage: 2 PUFF EVERY 6 HOURS AS NEEDED
     Route: 048
     Dates: start: 20111108
  6. LEVALBUTEROL TARTRATE. [Concomitant]
     Active Substance: LEVALBUTEROL TARTRATE
     Dosage: 2 PUFF EVERY 6 HOURS AS NEEDED
     Route: 048
     Dates: start: 20120425
  7. FLOVENT HFA [Concomitant]
     Active Substance: FLUTICASONE PROPIONATE
     Dosage: 1 PUFF TWICE A DAY
     Route: 048
     Dates: start: 20120416

REACTIONS (17)
  - Ejaculation disorder [Not Recovered/Not Resolved]
  - Sciatica [Unknown]
  - Urinary retention [Unknown]
  - Self esteem decreased [Not Recovered/Not Resolved]
  - Anxiety [Not Recovered/Not Resolved]
  - Benign prostatic hyperplasia [Unknown]
  - Depressed mood [Unknown]
  - Sexual dysfunction [Not Recovered/Not Resolved]
  - Loss of libido [Unknown]
  - Urinary retention [Unknown]
  - Nightmare [Unknown]
  - Prostatic obstruction [Unknown]
  - Bladder outlet obstruction [Unknown]
  - Depression [Not Recovered/Not Resolved]
  - Disturbance in attention [Unknown]
  - Apathy [Unknown]
  - Erectile dysfunction [Not Recovered/Not Resolved]

NARRATIVE: CASE EVENT DATE: 20121115
